FAERS Safety Report 10005037 (Version 2)
Quarter: 2014Q1

REPORT INFORMATION
  Report Type: Report from Study
  Country: ES (occurrence: ES)
  Receive Date: 20140312
  Receipt Date: 20140320
  Transmission Date: 20141002
  Serious: Yes (Death, Hospitalization, Other)
  Sender: FDA-Public Use
  Company Number: PHHY2014ES027613

PATIENT
  Age: 25 Year
  Sex: Male
  Weight: 56 kg

DRUGS (7)
  1. FAMVIR [Suspect]
     Indication: TOXOPLASMOSIS
     Dosage: 750 UKN, TID
     Dates: start: 20131029
  2. RALTEGRAVIR [Suspect]
     Indication: HIV INFECTION
     Dosage: 800 UKN, BID
     Dates: start: 20131029
  3. SULFADIAZINE [Suspect]
     Indication: TOXOPLASMOSIS
     Dosage: 6 UKN, 6 TIMES A DAY
     Dates: start: 20131007
  4. LEDERFOLIN [Suspect]
     Indication: TOXOPLASMOSIS
     Dosage: 10 UKN, QD
     Route: 048
     Dates: start: 20131007
  5. MARAVIROC [Suspect]
     Indication: HIV INFECTION
     Dosage: 600 UKN, BID
     Dates: start: 20131029
  6. TRUVADA [Suspect]
     Indication: HIV INFECTION
     Dosage: 500 UKN, QD
     Dates: start: 20131029
  7. DARAPRIM [Suspect]
     Indication: TOXOPLASMOSIS
     Dosage: 50 UKN, QD
     Dates: start: 20131007

REACTIONS (11)
  - Escherichia bacteraemia [Fatal]
  - Hypokalaemia [Unknown]
  - Hyponatraemia [Unknown]
  - Vomiting [Unknown]
  - Abdominal pain upper [Unknown]
  - Nausea [Unknown]
  - Histoplasmosis [Unknown]
  - Cytomegalovirus infection [Unknown]
  - Gastrointestinal haemorrhage [Unknown]
  - Oesophageal ulcer [Unknown]
  - Strongyloidiasis [Unknown]
